FAERS Safety Report 9529258 (Version 2)
Quarter: 2013Q4

REPORT INFORMATION
  Report Type: Spontaneous
  Country: SI (occurrence: SI)
  Receive Date: 20130917
  Receipt Date: 20131011
  Transmission Date: 20140711
  Serious: Yes (Other)
  Sender: FDA-Public Use
  Company Number: SI-JNJFOC-20130904980

PATIENT
  Sex: 0

DRUGS (19)
  1. TOPIRAMATE [Suspect]
     Indication: EPILEPSY
     Route: 048
  2. RISOLEPT [Suspect]
     Indication: PSYCHOTIC DISORDER
     Route: 048
  3. CARBAMAZEPINE [Suspect]
     Indication: PSYCHOTIC DISORDER
     Route: 065
  4. VALPROIC ACID [Suspect]
     Indication: PSYCHOTIC DISORDER
     Route: 065
  5. PHENOBARBITAL [Suspect]
     Indication: EPILEPSY
     Route: 065
  6. CLONAZEPAM [Suspect]
     Indication: PSYCHOTIC DISORDER
     Route: 065
  7. DIAZEPAM [Suspect]
     Indication: PSYCHOTIC DISORDER
     Route: 065
  8. BROMAZEPAM [Suspect]
     Indication: PSYCHOTIC DISORDER
     Route: 065
  9. LORAZEPAM [Suspect]
     Indication: PSYCHOTIC DISORDER
     Route: 065
  10. CLOZAPINE [Suspect]
     Indication: PSYCHOTIC DISORDER
     Route: 065
  11. LAMOTRIGINE [Concomitant]
     Route: 065
  12. BECLOMETHASONE [Concomitant]
     Route: 065
  13. ALLOPURINOL [Concomitant]
     Route: 065
  14. VITAMIN B [Concomitant]
     Route: 065
  15. LABETALOL [Concomitant]
     Route: 065
  16. AMOXICILLIN [Concomitant]
     Route: 065
  17. DICLOFENAC [Concomitant]
     Route: 065
  18. CAPTOPRIL [Concomitant]
     Route: 065
  19. NIFEDIPINE [Concomitant]
     Route: 065

REACTIONS (23)
  - Nephrolithiasis [Unknown]
  - Ataxia [Unknown]
  - Confusional state [Unknown]
  - Depression [Unknown]
  - Tremor [Unknown]
  - Weight decreased [Unknown]
  - Somnolence [Unknown]
  - Memory impairment [Unknown]
  - Fatigue [Unknown]
  - Speech disorder [Unknown]
  - Dizziness [Unknown]
  - Insomnia [Unknown]
  - Nausea [Unknown]
  - Nervousness [Unknown]
  - Headache [Unknown]
  - Hypotonia [Unknown]
  - Vision blurred [Unknown]
  - Increased appetite [Unknown]
  - Weight increased [Unknown]
  - Syncope [Unknown]
  - Rash [Unknown]
  - Blood glucose fluctuation [Unknown]
  - Sensory disturbance [Unknown]
